FAERS Safety Report 8095013-5 (Version None)
Quarter: 2012Q1

REPORT INFORMATION
  Report Type: 
  Country: None (occurrence: None)
  Receive Date: 20120131
  Receipt Date: 20120131
  Transmission Date: 20120608
  Serious: Yes (Other)
  Sender: FDA-Public Use
  Company Number: None

PATIENT
  Age: 44 Year
  Sex: Male
  Weight: 127.91 kg

DRUGS (2)
  1. CYMBALTA [Suspect]
     Indication: ARTHRITIS
     Dosage: 60.0 MG
     Route: 048
     Dates: start: 20120116, end: 20120130
  2. CYMBALTA [Suspect]
     Indication: BACK PAIN
     Dosage: 60.0 MG
     Route: 048
     Dates: start: 20120116, end: 20120130

REACTIONS (8)
  - HYPERHIDROSIS [None]
  - INSOMNIA [None]
  - PAIN [None]
  - MUSCULOSKELETAL CHEST PAIN [None]
  - ABNORMAL SENSATION IN EYE [None]
  - CHROMATURIA [None]
  - LOSS OF LIBIDO [None]
  - VISION BLURRED [None]
